FAERS Safety Report 9988918 (Version 1)
Quarter: 2014Q1

REPORT INFORMATION
  Report Type: Spontaneous
  Country: US (occurrence: US)
  Receive Date: 20140310
  Receipt Date: 20140310
  Transmission Date: 20141002
  Serious: No
  Sender: FDA-Public Use
  Company Number: US-ABBVIE-13P-163-1128376-00

PATIENT
  Age: 31 Year
  Sex: Male
  Weight: 70.37 kg

DRUGS (3)
  1. HUMIRA [Suspect]
     Indication: PSORIATIC ARTHROPATHY
     Route: 058
     Dates: start: 2011
  2. VITAMIN D [Concomitant]
     Indication: VITAMIN D DEFICIENCY
  3. CYMBALTA [Concomitant]
     Indication: ARTHRALGIA

REACTIONS (3)
  - Joint stiffness [Not Recovered/Not Resolved]
  - Psoriatic arthropathy [Not Recovered/Not Resolved]
  - Psoriasis [Not Recovered/Not Resolved]
